FAERS Safety Report 7052368-8 (Version None)
Quarter: 2010Q4

REPORT INFORMATION
  Report Type: 
  Country: None (occurrence: None)
  Receive Date: 20101019
  Receipt Date: 20101007
  Transmission Date: 20110411
  Serious: Yes (Hospitalization)
  Sender: FDA-Public Use
  Company Number: US-WATSON-2010-13416

PATIENT
  Sex: Female
  Weight: 59 kg

DRUGS (3)
  1. TAMOXIFEN CITRATE [Suspect]
     Indication: BREAST CANCER
     Dosage: 20 MG, DAILY
     Route: 048
     Dates: start: 20100322
  2. PREDNISONE (WATSON LABORATORIES) [Suspect]
     Indication: LOWER RESPIRATORY TRACT INFLAMMATION
     Dosage: 10 MG, DAILY
     Route: 048
     Dates: start: 20100423
  3. METFORMIN HCL [Concomitant]
     Indication: DIABETES MELLITUS
     Dosage: 500 MG, DAILY
     Route: 048
     Dates: start: 20100101

REACTIONS (10)
  - CHEST DISCOMFORT [None]
  - DYSPNOEA [None]
  - DYSPNOEA EXERTIONAL [None]
  - FATIGUE [None]
  - INFLUENZA LIKE ILLNESS [None]
  - LOWER RESPIRATORY TRACT INFLAMMATION [None]
  - ORGANISING PNEUMONIA [None]
  - OROPHARYNGEAL PAIN [None]
  - PAIN [None]
  - PNEUMONIA [None]
